FAERS Safety Report 9311161 (Version 4)
Quarter: 2014Q2

REPORT INFORMATION
  Report Type: Spontaneous
  Country: US (occurrence: None)
  Receive Date: 20130311
  Receipt Date: 20140418
  Transmission Date: 20141212
  Serious: Yes (Hospitalization, Other)
  Sender: FDA-Public Use
  Company Number: ADR-2013-00199

PATIENT
  Age: 27 Year
  Sex: Female

DRUGS (12)
  1. LIORESAL [Suspect]
     Indication: MUSCLE SPASTICITY
     Dosage: 300 MCG/DAY
     Dates: start: 200401
  2. PEPCID [Suspect]
  3. TORADOL [Suspect]
  4. ENULOSE [Suspect]
  5. ATIVAN [Suspect]
  6. TOPROL XL [Suspect]
  7. REMERON [Suspect]
  8. SEROQUEL. [Suspect]
  9. VITAMIN D3 [Suspect]
  10. AMBIEN [Suspect]
  11. SEROXAT [Suspect]
  12. DULCOLAX [Suspect]

REACTIONS (6)
  - Muscle spasticity [None]
  - Convulsion [None]
  - Acute respiratory distress syndrome [None]
  - Pump reservoir issue [None]
  - Infection [None]
  - Metabolic disorder [None]
